FAERS Safety Report 22618943 (Version 1)
Quarter: 2023Q2

REPORT INFORMATION
  Report Type: Spontaneous
  Country: JP (occurrence: JP)
  Receive Date: 20230620
  Receipt Date: 20230620
  Transmission Date: 20230722
  Serious: Yes (Death, Other)
  Sender: FDA-Public Use
  Company Number: JP-CHEPLA-2023007248

PATIENT
  Age: 55 Year
  Sex: Male

DRUGS (1)
  1. VALGANCICLOVIR [Suspect]
     Active Substance: VALGANCICLOVIR
     Indication: Cytomegalovirus chorioretinitis
     Dosage: VALGANCICLOVIR 3 WEEKS AFTER THE START OF TREATMENT

REACTIONS (4)
  - Interstitial lung disease [Fatal]
  - White blood cell count decreased [Unknown]
  - Pancytopenia [Unknown]
  - Product use in unapproved indication [Unknown]
